FAERS Safety Report 12069671 (Version 2)
Quarter: 2016Q1

REPORT INFORMATION
  Report Type: Spontaneous
  Country: MX (occurrence: MX)
  Receive Date: 20160211
  Receipt Date: 20160218
  Transmission Date: 20160526
  Serious: Yes (Hospitalization)
  Sender: FDA-Public Use
  Company Number: MX-UCBSA-2016004423

PATIENT
  Age: 23 Year
  Sex: Female
  Weight: 50 kg

DRUGS (1)
  1. KEPPRA [Suspect]
     Active Substance: LEVETIRACETAM
     Indication: PARTIAL SEIZURES
     Dosage: 5 G ONE TIME DOSE (10 VIALS OF 100 MG/ML)
     Route: 042
     Dates: start: 20160203, end: 20160203

REACTIONS (3)
  - Stupor [Recovered/Resolved]
  - Physical product label issue [Unknown]
  - Overdose [Unknown]

NARRATIVE: CASE EVENT DATE: 20160203
